FAERS Safety Report 8254823-1 (Version None)
Quarter: 2012Q2

REPORT INFORMATION
  Report Type: 
  Country: None (occurrence: None)
  Receive Date: 20120403
  Receipt Date: 20120328
  Transmission Date: 20120825
  Serious: Yes (Other)
  Sender: FDA-Public Use
  Company Number: PHHY2011CA87412

PATIENT
  Sex: Female

DRUGS (2)
  1. ZOLEDRONOC ACID [Suspect]
     Dosage: UNK UKN, UNK
     Route: 042
     Dates: start: 20120327
  2. ZOLEDRONOC ACID [Suspect]
     Indication: OSTEOPOROSIS
     Dosage: UNK UKN, UNK
     Route: 042
     Dates: start: 20110321

REACTIONS (11)
  - MIGRAINE [None]
  - HEADACHE [None]
  - VOMITING [None]
  - ARTHRALGIA [None]
  - MUSCULOSKELETAL PAIN [None]
  - FATIGUE [None]
  - NAUSEA [None]
  - BACK PAIN [None]
  - BREAST PAIN [None]
  - ALOPECIA [None]
  - NECK PAIN [None]
